FAERS Safety Report 7081634-5 (Version None)
Quarter: 2010Q4

REPORT INFORMATION
  Report Type: 
  Country: None (occurrence: None)
  Receive Date: 20101103
  Receipt Date: 20101026
  Transmission Date: 20110411
  Serious: Yes (Hospitalization, Other)
  Sender: FDA-Public Use
  Company Number: PHHO2010ZA15903

PATIENT
  Sex: Male
  Weight: 70.1 kg

DRUGS (5)
  1. TASIGNA [Suspect]
     Indication: GASTROINTESTINAL STROMAL TUMOUR
     Dosage: 400 MG, BID
     Route: 048
     Dates: start: 20101013, end: 20101014
  2. IRON SUPPLEMENTS [Concomitant]
  3. SUCRALFATE [Concomitant]
     Indication: DYSPEPSIA
  4. RABEPRAZOLE SODIUM [Concomitant]
     Indication: DYSPEPSIA
  5. CALCIUM [Concomitant]

REACTIONS (6)
  - HYPOPHAGIA [None]
  - INFECTION [None]
  - INTESTINAL OBSTRUCTION [None]
  - NAUSEA [None]
  - PYREXIA [None]
  - VOMITING [None]
